FAERS Safety Report 6522964-2 (Version None)
Quarter: 2009Q4

REPORT INFORMATION
  Report Type: 
  Country: None (occurrence: None)
  Receive Date: 20091230
  Receipt Date: 20091217
  Transmission Date: 20100525
  Serious: Yes (Congenital Anomaly)
  Sender: FDA-Public Use
  Company Number: GB-WATSON-2009-11020

PATIENT
  Age: 37 Week
  Sex: Male
  Weight: 2.9 kg

DRUGS (4)
  1. LAMOTRIGINE (WATSON LABORATORIES) [Suspect]
     Indication: EPILEPSY
     Dosage: 300 MG, DAILY
     Route: 064
  2. TOPIRAMATE [Suspect]
     Indication: EPILEPSY
     Dosage: 100 MG, DAILY
     Route: 064
  3. CLOBAZAM [Suspect]
     Indication: EPILEPSY
     Dosage: 20 MG, DAILY
     Route: 065
  4. VALPROATE SODIUM [Suspect]
     Indication: EPILEPSY
     Dosage: 1000 MG, DAILY

REACTIONS (2)
  - HYPOSPADIAS [None]
  - MATERNAL DRUGS AFFECTING FOETUS [None]
